FAERS Safety Report 4501073-8 (Version None)
Quarter: 2004Q3

REPORT INFORMATION
  Report Type: 
  Country: None (occurrence: None)
  Receive Date: 20040927
  Receipt Date: 20040812
  Transmission Date: 20050211
  Serious: No
  Sender: FDA-Public Use
  Company Number: USA040875298

PATIENT
  Age: 56 Year
  Sex: Female

DRUGS (4)
  1. STRATTERA [Suspect]
     Indication: ATTENTION DEFICIT/HYPERACTIVITY DISORDER
     Dosage: 18 MG/4 DAY
     Dates: start: 20040702
  2. DIAZIDE (GLICLAZIDE) [Concomitant]
  3. LEXAPRO [Concomitant]
  4. LIPITOR [Concomitant]

REACTIONS (1)
  - ARTHRALGIA [None]
